FAERS Safety Report 20431760 (Version 1)
Quarter: 2022Q1

REPORT INFORMATION
  Report Type: Spontaneous
  Country: US (occurrence: US)
  Receive Date: 20220204
  Receipt Date: 20220204
  Transmission Date: 20220423
  Serious: Yes (Other)
  Sender: FDA-Public Use
  Company Number: US-CELGENE-USA-20220107859

PATIENT
  Sex: Male
  Weight: 59.020 kg

DRUGS (1)
  1. INREBIC [Suspect]
     Active Substance: FEDRATINIB HYDROCHLORIDE
     Indication: Product used for unknown indication
     Dosage: 4 TABLET
     Route: 048

REACTIONS (2)
  - Full blood count abnormal [Unknown]
  - Hypophagia [Unknown]
